FAERS Safety Report 5475139-2 (Version None)
Quarter: 2007Q4

REPORT INFORMATION
  Report Type: 
  Country: None (occurrence: None)
  Receive Date: 20071002
  Receipt Date: 20070924
  Transmission Date: 20080405
  Serious: Yes (Death)
  Sender: FDA-Public Use
  Company Number: ES-PFIZER INC-2007079169

PATIENT
  Age: 64 Year
  Sex: Male
  Weight: 77 kg

DRUGS (2)
  1. LYRICA [Suspect]
     Indication: POLYNEUROPATHY
     Route: 048
  2. METFORMIN HCL [Suspect]
     Indication: DIABETES MELLITUS
     Route: 048

REACTIONS (2)
  - PHARYNGOLARYNGEAL PAIN [None]
  - SUDDEN DEATH [None]
